FAERS Safety Report 24747266 (Version 1)
Quarter: 2024Q4

REPORT INFORMATION
  Report Type: Spontaneous
  Country: US (occurrence: US)
  Receive Date: 20241218
  Receipt Date: 20241218
  Transmission Date: 20250115
  Serious: No
  Sender: ROCHE
  Company Number: US-ROCHE-10000153837

PATIENT
  Age: 18 Year
  Sex: Male
  Weight: 70.31 kg

DRUGS (2)
  1. XOLAIR [Suspect]
     Active Substance: OMALIZUMAB
     Indication: Urticaria
     Route: 058
     Dates: start: 202407
  2. XOLAIR [Suspect]
     Active Substance: OMALIZUMAB
     Indication: Food allergy

REACTIONS (3)
  - Device dispensing error [Unknown]
  - Product dose omission issue [Unknown]
  - No adverse event [Unknown]

NARRATIVE: CASE EVENT DATE: 20241209
